FAERS Safety Report 4602772-X (Version None)
Quarter: 2005Q1

REPORT INFORMATION
  Report Type: 
  Country: None (occurrence: None)
  Receive Date: 20050309
  Receipt Date: 20050224
  Transmission Date: 20050727
  Serious: Yes (Other)
  Sender: FDA-Public Use
  Company Number: ES-JNJFOC-20050206183

PATIENT
  Age: 40 Year
  Sex: Female

DRUGS (2)
  1. TOPAMAX [Suspect]
     Route: 065
     Dates: start: 20040101, end: 20050201
  2. TOPAMAX [Suspect]
     Route: 065
     Dates: start: 20040101, end: 20050201

REACTIONS (5)
  - ERYTHEMA [None]
  - LOCAL SWELLING [None]
  - MUSCLE SPASMS [None]
  - PARAESTHESIA [None]
  - SWELLING FACE [None]
